FAERS Safety Report 6198041-X (Version None)
Quarter: 2009Q2

REPORT INFORMATION
  Report Type: 
  Country: None (occurrence: None)
  Receive Date: 20090518
  Receipt Date: 20090430
  Transmission Date: 20091009
  Serious: Yes (Other)
  Sender: FDA-Public Use
  Company Number: 8037088

PATIENT
  Age: 41 Year
  Sex: Female
  Weight: 68.19 kg

DRUGS (10)
  1. CIMZIA [Suspect]
     Indication: CROHN'S DISEASE
     Dosage: 400 MG 1/2W SC
     Route: 058
     Dates: start: 20080613
  2. CIMZIA [Suspect]
     Indication: CROHN'S DISEASE
     Dosage: 400 MG / M SC
     Route: 058
  3. BENICAR [Concomitant]
  4. BIRTH CONTROL [Concomitant]
  5. VITAMIN B-12 [Concomitant]
  6. ASACOL [Concomitant]
  7. PAMINE [Concomitant]
  8. BENTYL [Concomitant]
  9. MIRCETTE [Concomitant]
  10. TYLENOL [Concomitant]

REACTIONS (6)
  - FATIGUE [None]
  - FLUSHING [None]
  - HYPERTENSION [None]
  - INFLUENZA LIKE ILLNESS [None]
  - INJECTION SITE REACTION [None]
  - SWELLING FACE [None]
